FAERS Safety Report 4365647-X (Version None)
Quarter: 2004Q2

REPORT INFORMATION
  Report Type: 
  Country: None (occurrence: None)
  Receive Date: 20040521
  Receipt Date: 20040430
  Transmission Date: 20050107
  Serious: Yes (Death)
  Sender: FDA-Public Use
  Company Number: FR_040504057

PATIENT
  Age: 49 Year
  Sex: Male
  Weight: 73 kg

DRUGS (6)
  1. HUMALOG [Suspect]
     Indication: DIABETES MELLITUS INSULIN-DEPENDENT
     Dosage: 7 IU/3 DAY
     Dates: start: 20030505
  2. HUMULIN N [Suspect]
     Indication: DIABETES MELLITUS INSULIN-DEPENDENT
     Dosage: 12 IU/2 DAY
     Dates: start: 20030504
  3. VIRAFERONPEG [Concomitant]
  4. ALPRESS (PRAZOSIN HYDROCHLORIDE) [Concomitant]
  5. TENSTATEN (CICLETANINE) [Concomitant]
  6. VIRLIX (CETIRIZINE HYDROCHLORIDE) [Concomitant]

REACTIONS (2)
  - CARDIAC DISORDER [None]
  - MALAISE [None]
